FAERS Safety Report 14851432 (Version 1)
Quarter: 2018Q2

REPORT INFORMATION
  Report Type: Spontaneous
  Country: FR (occurrence: FR)
  Receive Date: 20180507
  Receipt Date: 20180507
  Transmission Date: 20180711
  Serious: Yes (Other)
  Sender: FDA-Public Use
  Company Number: FR-MERCK KGAA-2047260

PATIENT
  Age: 70 Year
  Sex: Female

DRUGS (3)
  1. NOVOTHYROX [Suspect]
     Active Substance: LEVOTHYROXINE SODIUM
     Indication: POST PROCEDURAL HYPOTHYROIDISM
     Dates: start: 201706
  2. NOVOTHYROX [Suspect]
     Active Substance: LEVOTHYROXINE SODIUM
  3. NOVOTHYROX [Suspect]
     Active Substance: LEVOTHYROXINE SODIUM
     Dates: start: 201708

REACTIONS (22)
  - Dyspnoea [None]
  - Anxiety [None]
  - Mood swings [None]
  - Aggression [None]
  - Muscle spasms [Not Recovered/Not Resolved]
  - Gastrointestinal pain [None]
  - Disturbance in attention [None]
  - Social problem [None]
  - Depression [None]
  - Sleep disorder [None]
  - Alopecia [Not Recovered/Not Resolved]
  - Dyspnoea at rest [Not Recovered/Not Resolved]
  - Gastrointestinal motility disorder [None]
  - Insomnia [None]
  - Apathy [None]
  - Claustrophobia [None]
  - Fatigue [Not Recovered/Not Resolved]
  - Weight increased [None]
  - Pruritus [None]
  - Loss of personal independence in daily activities [None]
  - Memory impairment [Not Recovered/Not Resolved]
  - Hyperhidrosis [None]

NARRATIVE: CASE EVENT DATE: 2017
